FAERS Safety Report 10858733 (Version 1)
Quarter: 2015Q1

REPORT INFORMATION
  Report Type: Spontaneous
  Country: US (occurrence: US)
  Receive Date: 20150223
  Receipt Date: 20150223
  Transmission Date: 20150721
  Serious: No
  Sender: FDA-Public Use
  Company Number: US-AMGEN-USASP2014011857

PATIENT
  Age: 10 Year
  Sex: Male

DRUGS (2)
  1. ENBREL [Suspect]
     Active Substance: ETANERCEPT
     Indication: FAMILIAL MEDITERRANEAN FEVER
     Dosage: 25 MG, QWK (25MG/0.4ML)
     Route: 058
  2. ENBREL [Suspect]
     Active Substance: ETANERCEPT
     Indication: TUMOUR NECROSIS

REACTIONS (1)
  - Eosinophil count increased [Recovered/Resolved]

NARRATIVE: CASE EVENT DATE: 201401
